FAERS Safety Report 5240019-4 (Version None)
Quarter: 2007Q1

REPORT INFORMATION
  Report Type: 
  Country: None (occurrence: None)
  Receive Date: 20070216
  Receipt Date: 20070207
  Transmission Date: 20070707
  Serious: Yes (Hospitalization, Other)
  Sender: FDA-Public Use
  Company Number: JP-PFIZER INC-2007007058

PATIENT
  Sex: Female
  Weight: 41.9 kg

DRUGS (10)
  1. SULFASALAZINE [Suspect]
     Indication: COLITIS ULCERATIVE
     Route: 048
  2. PREDONINE [Concomitant]
     Route: 048
  3. ENTERONON R [Concomitant]
     Route: 048
  4. FLAVITAN [Concomitant]
     Route: 048
  5. PARIET [Concomitant]
     Route: 048
  6. ACTONEL [Concomitant]
     Route: 048
  7. SOLITA-T1 INJECTION [Concomitant]
     Route: 042
     Dates: start: 20070117, end: 20070117
  8. SOLDEM 3A [Concomitant]
     Route: 042
     Dates: start: 20070118, end: 20070120
  9. ALL OTHER THERAPEUTIC PRODUCTS [Concomitant]
     Route: 042
     Dates: start: 20070118, end: 20070120
  10. DEXTROSE INFUSION FLUID 5% [Concomitant]
     Route: 042
     Dates: start: 20070118, end: 20070120

REACTIONS (3)
  - ANAEMIA MEGALOBLASTIC [None]
  - HISTIOCYTOSIS HAEMATOPHAGIC [None]
  - RECTAL ULCER [None]
